FAERS Safety Report 18508827 (Version 2)
Quarter: 2021Q1

REPORT INFORMATION
  Report Type: Spontaneous
  Country: US (occurrence: US)
  Receive Date: 20201117
  Receipt Date: 20210124
  Transmission Date: 20210419
  Serious: No
  Sender: FDA-Public Use
  Company Number: US-BIOGEN-2009BI002177

PATIENT
  Age: 40 Year
  Sex: Female

DRUGS (6)
  1. AVONEX [Suspect]
     Active Substance: INTERFERON BETA-1A
  2. AVONEX [Suspect]
     Active Substance: INTERFERON BETA-1A
  3. AVONEX [Suspect]
     Active Substance: INTERFERON BETA-1A
     Indication: MULTIPLE SCLEROSIS
     Route: 030
     Dates: start: 19970801, end: 20081101
  4. AVONEX [Suspect]
     Active Substance: INTERFERON BETA-1A
  5. COPAXONE [Concomitant]
     Active Substance: GLATIRAMER ACETATE
     Indication: MULTIPLE SCLEROSIS
     Route: 065
  6. AVONEX [Suspect]
     Active Substance: INTERFERON BETA-1A

REACTIONS (4)
  - Hypersensitivity [Recovered/Resolved]
  - Eye swelling [Recovered/Resolved]
  - Lip swelling [Not Recovered/Not Resolved]
  - Swelling face [Recovered/Resolved]

NARRATIVE: CASE EVENT DATE: 2008
